FAERS Safety Report 20707457 (Version 2)
Quarter: 2022Q2

REPORT INFORMATION
  Report Type: Spontaneous
  Country: US (occurrence: US)
  Receive Date: 20220413
  Receipt Date: 20220429
  Transmission Date: 20220721
  Serious: No
  Sender: FDA-Public Use
  Company Number: US-PFIZER INC-202200080447

PATIENT
  Age: 43 Year
  Sex: Female

DRUGS (1)
  1. IBRANCE [Suspect]
     Active Substance: PALBOCICLIB
     Dosage: 125 MG
     Dates: start: 20180113

REACTIONS (4)
  - Dry skin [Unknown]
  - Skin exfoliation [Unknown]
  - Fatigue [Unknown]
  - Stomatitis [Unknown]
